FAERS Safety Report 21280998 (Version 1)
Quarter: 2022Q3

REPORT INFORMATION
  Report Type: Spontaneous
  Country: US (occurrence: US)
  Receive Date: 20220901
  Receipt Date: 20220901
  Transmission Date: 20221026
  Serious: Yes (Other)
  Sender: FDA-Public Use
  Company Number: US-PFIZER INC-202201104638

PATIENT
  Age: 48 Year
  Sex: Female

DRUGS (1)
  1. PAXLOVID [Suspect]
     Active Substance: NIRMATRELVIR\RITONAVIR
     Indication: COVID-19 treatment
     Dosage: UNK
     Dates: start: 20220822, end: 20220824

REACTIONS (7)
  - Depression [Unknown]
  - Palpitations [Unknown]
  - Fatigue [Unknown]
  - Dry mouth [Unknown]
  - Dysgeusia [Unknown]
  - Headache [Unknown]
  - Incorrect product administration duration [Unknown]

NARRATIVE: CASE EVENT DATE: 20220801
